FAERS Safety Report 6276008-0 (Version None)
Quarter: 2009Q3

REPORT INFORMATION
  Report Type: 
  Country: None (occurrence: None)
  Receive Date: 20090713
  Receipt Date: 20090702
  Transmission Date: 20100115
  Serious: Yes (Death)
  Sender: FDA-Public Use
  Company Number: THYM-1001042

PATIENT
  Age: 58 Year
  Sex: Female
  Weight: 44 kg

DRUGS (36)
  1. THYMOGLOBULIN [Suspect]
     Indication: STEM CELL TRANSPLANT
     Dosage: 2.5 MG/KG, INTRAVENOUS
     Route: 042
     Dates: start: 20090109, end: 20090112
  2. OMEPRAZOLE [Concomitant]
  3. AMLODIPINE BESYLATE [Concomitant]
  4. ETIZOLAM (ETIZOLAM) [Concomitant]
  5. ITRACONAZOLE [Concomitant]
  6. ALLOPURINOL [Concomitant]
  7. CYCLOSPORINE [Concomitant]
  8. POTASSIUM CHLORIDE [Concomitant]
  9. ACETAMINOPHEN [Concomitant]
  10. METHYLPREDNISOLONE [Concomitant]
  11. CEFEPIME HYDROCHLORIDE [Concomitant]
  12. MEROPENEM TRIHYDRATE (MEROPENEM TRIHYDRATE) [Concomitant]
  13. FILGRASTIM (FILGRASTIM) [Concomitant]
  14. MAINTAINENCE MEDIUM (MAINTAINENCE MEDIUM) [Concomitant]
  15. GANCICLOVIR [Concomitant]
  16. PENTAMIDINE ISETHIONATE [Concomitant]
  17. MAGNESIUM SULFATE [Concomitant]
  18. POSTOPERATIVE RECOVERY MEDIUM (POSTOPERATIVE RECOVERY MEDIUM) [Concomitant]
  19. DANAPAROID SODIUM (DANAPAROID SODIUM) [Concomitant]
  20. AMINO ACID PREPARATION (AMINO ACID PREPARATION) [Concomitant]
  21. THIAMINE DISULFIDE (THIAMINE DISULFIDE) [Concomitant]
  22. MICAFUNGIN SODIUM (MICAFUNGIN SODIUM) [Concomitant]
  23. INSULIN HUMAN (INSULIN HUMAN) [Concomitant]
  24. HUMAN SERUM ALBUMIN (HUMAN SERUM ALBUMIN) [Concomitant]
  25. CHLORPHENIRAMINE MALEATE [Concomitant]
  26. FUROSEMIDE [Concomitant]
  27. HYDROCORTISONE SODIUM PHOSPHATE (HYDROCORTISONE SODIUM PHOSPHATE) [Concomitant]
  28. SCOPOLAMINE (HYOSCINE HYDROBROMIDE) [Concomitant]
  29. PENTAZOCINE LACTATE [Concomitant]
  30. POTASSIUM CANRENOATE (POTASSIUM CANRENOATE) [Concomitant]
  31. TOTAL BODY IRRADIATION (TOTAL BODY IRRADIATION) [Concomitant]
  32. FLUDARABINE PHOSPHATE [Concomitant]
  33. MESNA [Concomitant]
  34. CYCLOPHOSPHAMIDE [Concomitant]
  35. METRONIDAZOLE (METRONIDAZOLE) [Concomitant]
  36. DEHYDRATION SUPPLEMENT (DEHYDRATION SUPPLEMENT) [Concomitant]

REACTIONS (8)
  - CYTOMEGALOVIRUS ANTIGEN POSITIVE [None]
  - HEPATIC INFECTION BACTERIAL [None]
  - HEPATIC INFECTION FUNGAL [None]
  - HEPATITIS FULMINANT [None]
  - HEPATITIS INFECTIOUS [None]
  - INFECTION [None]
  - VIRAL INFECTION [None]
  - VIRUS SEROLOGY TEST POSITIVE [None]
